FAERS Safety Report 7423344-8 (Version None)
Quarter: 2011Q2

REPORT INFORMATION
  Report Type: 
  Country: None (occurrence: None)
  Receive Date: 20110419
  Receipt Date: 20110405
  Transmission Date: 20111010
  Serious: Yes (Hospitalization, Other)
  Sender: FDA-Public Use
  Company Number: PHHO2008JP04973

PATIENT
  Sex: Male
  Weight: 87 kg

DRUGS (21)
  1. LEXOTAN [Concomitant]
     Dosage: UNK
  2. SIMVASTATIN [Concomitant]
  3. GASTER [Concomitant]
  4. DALACIN T [Concomitant]
  5. CLOZAPINE [Suspect]
     Dosage: 225MG
     Route: 048
     Dates: start: 20080514, end: 20080527
  6. CLOZAPINE [Suspect]
     Dosage: 225 MG DAILY
     Route: 048
     Dates: start: 20080703, end: 20080708
  7. STREPTOMYCIN SULFATE [Concomitant]
     Indication: ABDOMINAL PAIN UPPER
  8. PURSENNID [Concomitant]
  9. MYSLEE [Concomitant]
  10. SULFUR [Concomitant]
  11. CAMPHOR [Concomitant]
  12. LENDORMIN [Concomitant]
  13. CLOZAPINE [Suspect]
     Dosage: 200 MG DAILY
     Route: 048
     Dates: start: 20080709
  14. RHYTHMY [Concomitant]
  15. SEPAZON [Concomitant]
     Indication: SCHIZOPHRENIA
     Dosage: UNK
  16. AMOBAN [Concomitant]
  17. EVAMYL [Concomitant]
  18. LOXONIN [Concomitant]
  19. CLOZAPINE [Suspect]
     Indication: SCHIZOPHRENIA
     Dosage: UNK, UNK
     Route: 048
     Dates: start: 20060627
  20. CLOZAPINE [Suspect]
     Dosage: 250MG
     Route: 048
     Dates: start: 20080528, end: 20080702
  21. GENTACIN [Concomitant]

REACTIONS (21)
  - SALIVARY HYPERSECRETION [None]
  - SEDATION [None]
  - STRESS [None]
  - ABNORMAL BEHAVIOUR [None]
  - APATHY [None]
  - ANXIETY [None]
  - PSYCHOMOTOR HYPERACTIVITY [None]
  - EMOTIONAL DISORDER [None]
  - CONDITION AGGRAVATED [None]
  - SCHIZOPHRENIA [None]
  - DELUSION [None]
  - SUICIDAL IDEATION [None]
  - AGITATION [None]
  - BLOOD CREATINE PHOSPHOKINASE INCREASED [None]
  - LOGORRHOEA [None]
  - MENTAL STATUS CHANGES [None]
  - DIZZINESS [None]
  - DEPRESSION [None]
  - HALLUCINATION [None]
  - ILEUS [None]
  - OVERDOSE [None]
